FAERS Safety Report 4731177-6 (Version None)
Quarter: 2005Q3

REPORT INFORMATION
  Report Type: 
  Country: None (occurrence: None)
  Receive Date: 20050729
  Receipt Date: 20050729
  Transmission Date: 20060218
  Serious: No
  Sender: FDA-Public Use
  Company Number: None

PATIENT
  Age: 18 Year
  Sex: Male
  Weight: 40 kg

DRUGS (1)
  1. VANCOMYCIN [Suspect]
     Indication: RESPIRATORY DISTRESS
     Dosage: 800MG   Q8H   INTRAVENOU
     Route: 042
     Dates: start: 20041012, end: 20041018

REACTIONS (1)
  - RENAL FAILURE ACUTE [None]
